FAERS Safety Report 17247634 (Version 1)
Quarter: 2019Q4

REPORT INFORMATION
  Report Type: Spontaneous
  Country: US (occurrence: US)
  Receive Date: 20191213
  Receipt Date: 20191213
  Transmission Date: 20200122
  Serious: No
  Sender: FDA-Public Use
  Company Number: None

PATIENT
  Sex: Female

DRUGS (1)
  1. AFINITOR [Suspect]
     Active Substance: EVEROLIMUS
     Indication: BREAST CANCER
     Dosage: ?          OTHER DOSE:5MG (1/2 TAB);?
     Route: 048
     Dates: start: 201909

REACTIONS (4)
  - Vulvovaginal mycotic infection [None]
  - Urinary tract infection [None]
  - Vulvovaginal discomfort [None]
  - Vulvovaginal pain [None]
